FAERS Safety Report 7425549-9 (Version None)
Quarter: 2011Q2

REPORT INFORMATION
  Report Type: 
  Country: None (occurrence: None)
  Receive Date: 20110418
  Receipt Date: 20110418
  Transmission Date: 20111010
  Serious: No
  Sender: FDA-Public Use
  Company Number: None

PATIENT
  Sex: Female

DRUGS (1)
  1. FORTEO [Suspect]
     Indication: CONNECTIVE TISSUE DISORDER
     Dosage: 600MCG/2.4ML SC
     Route: 058
     Dates: start: 20110420

REACTIONS (1)
  - BONE DENSITY ABNORMAL [None]
